FAERS Safety Report 5451317-3 (Version None)
Quarter: 2007Q3

REPORT INFORMATION
  Report Type: 
  Country: None (occurrence: None)
  Receive Date: 20070911
  Receipt Date: 20070911
  Transmission Date: 20080115
  Serious: Yes (Other)
  Sender: FDA-Public Use
  Company Number: None

PATIENT
  Age: 27 Year
  Sex: Male
  Weight: 77.1115 kg

DRUGS (1)
  1. COLCHICINE [Suspect]
     Indication: GOUT
     Dosage: 1 PILL 8 HOURS PO
     Route: 048
     Dates: start: 20070807, end: 20070809

REACTIONS (2)
  - DIARRHOEA [None]
  - EPISTAXIS [None]
